FAERS Safety Report 4749399-7 (Version None)
Quarter: 2005Q3

REPORT INFORMATION
  Report Type: 
  Country: None (occurrence: None)
  Receive Date: 20050819
  Receipt Date: 20050506
  Transmission Date: 20060218
  Serious: Yes (Hospitalization, Other)
  Sender: FDA-Public Use
  Company Number: US-MERCK-0505USA00891

PATIENT
  Age: 51 Year
  Sex: Female
  Weight: 114 kg

DRUGS (4)
  1. VIOXX [Suspect]
     Indication: SPINAL OSTEOARTHRITIS
     Route: 048
     Dates: start: 19990101, end: 20040401
  2. VIOXX [Suspect]
     Indication: PAIN
     Route: 048
     Dates: start: 19990101, end: 20040401
  3. EXTRA STRENGTH TYLENOL [Concomitant]
     Route: 065
  4. INSULIN [Concomitant]
     Route: 065

REACTIONS (16)
  - ABDOMINAL PAIN UPPER [None]
  - ANXIETY [None]
  - BLOOD GLUCOSE INCREASED [None]
  - CATARACT [None]
  - CEREBROVASCULAR ACCIDENT [None]
  - CONSTIPATION [None]
  - DEPRESSION [None]
  - DIABETES MELLITUS [None]
  - HEADACHE [None]
  - HYPERGLYCAEMIA [None]
  - INSOMNIA [None]
  - OCULAR VASCULAR DISORDER [None]
  - RENAL FAILURE CHRONIC [None]
  - RETINAL DETACHMENT [None]
  - SKIN ULCER [None]
  - VOMITING [None]
